FAERS Safety Report 4839503-4 (Version None)
Quarter: 2005Q4

REPORT INFORMATION
  Report Type: 
  Country: None (occurrence: None)
  Receive Date: 20051129
  Receipt Date: 20051004
  Transmission Date: 20060501
  Serious: Yes (Death, Hospitalization, Other)
  Sender: FDA-Public Use
  Company Number: US-MERCK-0510USA02293

PATIENT
  Age: 55 Year
  Sex: Male
  Weight: 79 kg

DRUGS (5)
  1. VIOXX [Suspect]
     Indication: ARTHRITIS
     Route: 048
     Dates: start: 20000601, end: 20000901
  2. TYLENOL W/ CODEINE NO. 3 [Concomitant]
     Route: 065
  3. SOMA [Concomitant]
     Route: 065
  4. DIOVAN [Concomitant]
     Route: 065
  5. ACTOS [Concomitant]
     Route: 065

REACTIONS (43)
  - ACIDOSIS [None]
  - ACUTE MYOCARDIAL INFARCTION [None]
  - ACUTE PULMONARY OEDEMA [None]
  - ANGINA UNSTABLE [None]
  - ANXIETY [None]
  - ARRHYTHMIA [None]
  - ARTERIOSCLEROSIS CORONARY ARTERY [None]
  - ATRIOVENTRICULAR BLOCK [None]
  - AZOTAEMIA [None]
  - BLOOD CREATININE INCREASED [None]
  - BLOOD GLUCOSE DECREASED [None]
  - CARDIAC ARREST [None]
  - CARDIAC DISORDER [None]
  - CEREBROVASCULAR ACCIDENT [None]
  - CHOKING [None]
  - CHRONIC OBSTRUCTIVE PULMONARY DISEASE [None]
  - CONFUSIONAL STATE [None]
  - DEMENTIA [None]
  - DEMENTIA ALZHEIMER'S TYPE [None]
  - DEPRESSION [None]
  - DIABETIC NEUROPATHY [None]
  - DISORIENTATION [None]
  - HYPERKALAEMIA [None]
  - HYPERLIPIDAEMIA [None]
  - HYPERVENTILATION [None]
  - ISCHAEMIC CARDIOMYOPATHY [None]
  - LOBAR PNEUMONIA [None]
  - MYOCARDIAL INFARCTION [None]
  - NAUSEA [None]
  - NERVOUSNESS [None]
  - NORMOCHROMIC NORMOCYTIC ANAEMIA [None]
  - ORTHOSTATIC HYPOTENSION [None]
  - PERIPHERAL VASCULAR DISORDER [None]
  - PNEUMONIA ASPIRATION [None]
  - PULMONARY OEDEMA [None]
  - RENAL FAILURE [None]
  - RENAL FAILURE CHRONIC [None]
  - RESPIRATORY FAILURE [None]
  - RETINOPATHY [None]
  - SICK SINUS SYNDROME [None]
  - SKIN CANCER [None]
  - SYNCOPE [None]
  - VOMITING [None]
